FAERS Safety Report 14595249 (Version 1)
Quarter: 2018Q1

REPORT INFORMATION
  Report Type: Spontaneous
  Country: US (occurrence: US)
  Receive Date: 20180302
  Receipt Date: 20180302
  Transmission Date: 20180509
  Serious: Yes (Other)
  Sender: FDA-Public Use
  Company Number: US-AKORN PHARMACEUTICALS-2017AKN01362

PATIENT
  Age: 30 Year
  Sex: Female
  Weight: 89 kg

DRUGS (2)
  1. MYORISAN [Suspect]
     Active Substance: ISOTRETINOIN
     Indication: ACNE
     Dosage: 90 MG, 1X/DAY
     Route: 048
     Dates: start: 20171001, end: 20171114
  2. UNSPECIFIED CONTRACEPTIVES [Concomitant]
     Route: 048

REACTIONS (4)
  - Haematochezia [Recovered/Resolved]
  - Off label use [Recovered/Resolved]
  - Colitis [Recovered/Resolved]
  - Diarrhoea [Recovered/Resolved]

NARRATIVE: CASE EVENT DATE: 20171001
